FAERS Safety Report 18394396 (Version 1)
Quarter: 2020Q4

REPORT INFORMATION
  Report Type: Spontaneous
  Country: US (occurrence: US)
  Receive Date: 20201016
  Receipt Date: 20201016
  Transmission Date: 20210114
  Serious: No
  Sender: FDA-Public Use
  Company Number: US-TEVA-2020-US-1838613

PATIENT
  Age: 46 Year
  Sex: Female
  Weight: 83.91 kg

DRUGS (1)
  1. BUSPIRONE [Suspect]
     Active Substance: BUSPIRONE HYDROCHLORIDE
     Indication: ANXIETY
     Dosage: 30 MILLIGRAM DAILY;
     Route: 048

REACTIONS (4)
  - Influenza like illness [Unknown]
  - Throat irritation [Unknown]
  - Pyrexia [Unknown]
  - Headache [Unknown]
